FAERS Safety Report 5703600-1 (Version None)
Quarter: 2008Q2

REPORT INFORMATION
  Report Type: 
  Country: None (occurrence: None)
  Receive Date: 20080411
  Receipt Date: 20080328
  Transmission Date: 20081010
  Serious: Yes (Life-Threatening, Other)
  Sender: FDA-Public Use
  Company Number: US-GENENTECH-258505

PATIENT
  Sex: Female

DRUGS (21)
  1. OMALIZUMAB [Suspect]
     Indication: ASTHMA
     Dates: start: 20030801
  2. OMALIZUMAB [Suspect]
     Dosage: 225 MG, Q2W
     Route: 058
     Dates: start: 20041025
  3. FLUTICASONE [Concomitant]
     Indication: DRUG USE FOR UNKNOWN INDICATION
  4. COMBIVENT [Concomitant]
     Indication: DRUG USE FOR UNKNOWN INDICATION
  5. FORMOTEROL [Concomitant]
     Indication: DRUG USE FOR UNKNOWN INDICATION
  6. LEVALBUTEROL HYDROCHLORIDE [Concomitant]
     Indication: DRUG USE FOR UNKNOWN INDICATION
  7. PREDNISONE [Concomitant]
     Indication: DRUG USE FOR UNKNOWN INDICATION
     Dosage: UNK, UNK
  8. CARDIZEM [Concomitant]
     Indication: DRUG USE FOR UNKNOWN INDICATION
     Dosage: 120 MG, BID
  9. GLUCOPHAGE [Concomitant]
     Indication: DRUG USE FOR UNKNOWN INDICATION
     Dosage: 1000 MG, QD
  10. ELAVIL [Concomitant]
     Indication: DRUG USE FOR UNKNOWN INDICATION
     Dosage: 25 MG, QHS
     Route: 048
  11. BENICAR [Concomitant]
     Indication: DRUG USE FOR UNKNOWN INDICATION
     Dosage: 12.5 UNK, QD
     Route: 048
  12. SPIRIVA [Concomitant]
     Indication: DRUG USE FOR UNKNOWN INDICATION
     Dosage: UNK, QD
     Route: 048
  13. PROTONIX [Concomitant]
     Indication: DRUG USE FOR UNKNOWN INDICATION
     Dosage: 40 MG, QD
     Route: 048
  14. ASMANEX TWISTHALER [Concomitant]
     Indication: DRUG USE FOR UNKNOWN INDICATION
     Dosage: 2 PUFF, BID
     Route: 048
  15. ZYFLO [Concomitant]
     Indication: DRUG USE FOR UNKNOWN INDICATION
     Dosage: 1200 UNK, BID
     Route: 048
  16. CYMBALTA [Concomitant]
     Indication: DRUG USE FOR UNKNOWN INDICATION
     Dosage: 60 MG, QHS
     Route: 048
  17. DIOVAN HCT [Concomitant]
     Indication: DRUG USE FOR UNKNOWN INDICATION
     Dosage: UNK, QD
     Route: 048
  18. LANTUS [Concomitant]
     Indication: DRUG USE FOR UNKNOWN INDICATION
     Dosage: 60 UNK, QHS
     Route: 058
  19. HUMALOG [Concomitant]
     Indication: DRUG USE FOR UNKNOWN INDICATION
     Dosage: UNK, QID
     Route: 058
  20. CALCIUM [Concomitant]
     Indication: DRUG USE FOR UNKNOWN INDICATION
  21. VITAMIN D [Concomitant]
     Indication: DRUG USE FOR UNKNOWN INDICATION

REACTIONS (4)
  - BLOOD PRESSURE INCREASED [None]
  - DYSPHAGIA [None]
  - HEART RATE INCREASED [None]
  - RESPIRATORY RATE INCREASED [None]
